FAERS Safety Report 18324749 (Version 5)
Quarter: 2024Q1

REPORT INFORMATION
  Report Type: Spontaneous
  Country: US (occurrence: US)
  Receive Date: 20200929
  Receipt Date: 20240319
  Transmission Date: 20240410
  Serious: Yes (Hospitalization, Other)
  Sender: FDA-Public Use
  Company Number: US-AMNEAL PHARMACEUTICALS-2020-AMRX-02942

PATIENT
  Age: 28 Year
  Sex: Female
  Weight: 148 kg

DRUGS (21)
  1. ACTIVELLA [Suspect]
     Active Substance: ESTRADIOL\NORETHINDRONE ACETATE
     Indication: Endometriosis
     Dosage: 1 DOSAGE FORM, QD
     Route: 048
     Dates: start: 20180301, end: 20190225
  2. ACTIVELLA [Suspect]
     Active Substance: ESTRADIOL\NORETHINDRONE ACETATE
     Dosage: 1 DOSAGE FORM, QD
     Route: 048
     Dates: start: 20190226
  3. ELAGOLIX [Suspect]
     Active Substance: ELAGOLIX
     Indication: Endometriosis
     Dosage: 200 MILLIGRAM, 2 /DAY
     Route: 048
     Dates: start: 20180301, end: 20190225
  4. ELAGOLIX [Suspect]
     Active Substance: ELAGOLIX
     Dosage: 400 MILLIGRAM, QD
     Route: 048
     Dates: start: 20190226
  5. XYZAL [Concomitant]
     Active Substance: LEVOCETIRIZINE DIHYDROCHLORIDE
     Indication: Seasonal allergy
     Dosage: 5 MILLIGRAM, 1 /DAY
     Route: 048
     Dates: start: 201708
  6. ADDERALL [Concomitant]
     Active Substance: AMPHETAMINE ASPARTATE\AMPHETAMINE SULFATE\DEXTROAMPHETAMINE SACCHARATE\DEXTROAMPHETAMINE SULFATE
     Indication: Attention deficit hyperactivity disorder
     Dosage: 20 MILLIGRAM, QD
     Route: 048
     Dates: start: 2013
  7. GABAPENTIN [Concomitant]
     Active Substance: GABAPENTIN
     Indication: Nerve injury
     Dosage: 100 MILLIGRAM, QD
     Route: 048
     Dates: start: 20180104
  8. TRAZODONE [Concomitant]
     Active Substance: TRAZODONE HYDROCHLORIDE
     Indication: Insomnia
     Dosage: 200 MILLIGRAM, QD
     Route: 048
     Dates: start: 20180827
  9. ALBUTEROL SULFATE [Concomitant]
     Active Substance: ALBUTEROL SULFATE
     Indication: Seasonal allergy
     Dosage: 90 MICROGRAM, AS REQUIRED
     Dates: start: 20190601
  10. FLONASE [Concomitant]
     Active Substance: FLUTICASONE PROPIONATE
     Indication: Seasonal allergy
     Dosage: 50 MICROGRAM, AS REQUIRED
     Dates: start: 20190228
  11. KLONOPIN [Concomitant]
     Active Substance: CLONAZEPAM
     Indication: Anxiety
     Dosage: 1 MILLIGRAM, AS REQUIRED
     Route: 048
     Dates: start: 20190517
  12. AJOVY [Concomitant]
     Active Substance: FREMANEZUMAB-VFRM
     Indication: Migraine
     Dosage: 225 MILLIGRAM IN 4 WEEK
     Route: 030
     Dates: start: 20190416
  13. PHENTERMINE [Concomitant]
     Active Substance: PHENTERMINE
     Indication: Decreased appetite
     Dosage: 37.5 MILLIGRAM, QD
     Route: 048
     Dates: start: 20181226
  14. DULOXETINE [Concomitant]
     Active Substance: DULOXETINE
     Indication: Depression
     Dosage: 30 MILLIGRAM, QD
     Route: 048
     Dates: start: 20190802, end: 202001
  15. SEROQUEL [Concomitant]
     Active Substance: QUETIAPINE FUMARATE
     Indication: Insomnia
     Dosage: 50 MILLIGRAM, AS REQUIRED
     Route: 048
     Dates: start: 20190802
  16. CYCLOSPORINE [Concomitant]
     Active Substance: CYCLOSPORINE
     Indication: Urticaria
     Dosage: 100 MILLIGRAM, 2X/DAY
     Route: 048
     Dates: start: 20191125, end: 202001
  17. CELECOXIB [Concomitant]
     Active Substance: CELECOXIB
     Indication: Rheumatoid arthritis
     Dosage: 2 DOSAGE FORM, QD 400 MG (200 MG,2 IN 1 D)
     Route: 048
     Dates: start: 20191125, end: 202005
  18. CEFIXIME [Concomitant]
     Active Substance: CEFIXIME
     Indication: Migraine prophylaxis
     Dosage: 10 MILLIGRAM, QD
     Route: 048
     Dates: start: 20191125
  19. HYDROXYCHLOROQUINE DIPHOSPHATE [Concomitant]
     Active Substance: HYDROXYCHLOROQUINE DIPHOSPHATE
     Indication: Rheumatoid arthritis
     Dosage: 2 DOSAGE FORM, QD 400 MG (200 MG,2 IN 1 D)
     Route: 048
     Dates: start: 20191230
  20. VITAMINS [Concomitant]
     Active Substance: VITAMINS
     Indication: Supplementation therapy
     Dosage: 2 TABLETS, QD
     Route: 048
     Dates: start: 20200821
  21. SULFASALAZINE [Concomitant]
     Active Substance: SULFASALAZINE
     Indication: Rheumatoid arthritis
     Dosage: 1000 MILLIGRAM, DAILY
     Route: 048
     Dates: start: 202004

REACTIONS (2)
  - Obesity [Recovered/Resolved]
  - Condition aggravated [Recovered/Resolved]

NARRATIVE: CASE EVENT DATE: 20180301
